FAERS Safety Report 22913491 (Version 4)
Quarter: 2023Q4

REPORT INFORMATION
  Report Type: Spontaneous
  Country: US (occurrence: US)
  Receive Date: 20230906
  Receipt Date: 20231115
  Transmission Date: 20240110
  Serious: No
  Sender: FDA-Public Use
  Company Number: US-PFIZER INC-202300293117

PATIENT
  Age: 67 Year
  Sex: Male
  Weight: 83.91 kg

DRUGS (3)
  1. PAXLOVID [Suspect]
     Active Substance: NIRMATRELVIR\RITONAVIR
     Indication: COVID-19 treatment
     Dosage: [NIRMATRELVIR 300 MG]/[RITONAVIR 100 MG]; 2X/DAY
     Dates: start: 20230826
  2. FRAMYCETIN\MONOETHANOLAMINE [Concomitant]
     Active Substance: FRAMYCETIN\MONOETHANOLAMINE
     Dosage: 1 NASAL SPRAY 4 TIMES DAILY FOR 5 DAYS
  3. ESCARGOT [Concomitant]
     Active Substance: ESCARGOT
     Dosage: 1 TABLESPOON 3 TIMES DAILY FOR 5 DAYS

REACTIONS (2)
  - COVID-19 [Recovered/Resolved]
  - Disease recurrence [Recovered/Resolved]

NARRATIVE: CASE EVENT DATE: 20230903
